FAERS Safety Report 7701477-6 (Version None)
Quarter: 2011Q3

REPORT INFORMATION
  Report Type: 
  Country: None (occurrence: None)
  Receive Date: 20110822
  Receipt Date: 20110818
  Transmission Date: 20111222
  Serious: Yes (Death)
  Sender: FDA-Public Use
  Company Number: VE-PFIZER INC-2011178736

PATIENT
  Age: 75 Year
  Sex: Male

DRUGS (2)
  1. LIPITOR [Suspect]
     Dosage: UNK
     Route: 048
     Dates: start: 20110601, end: 20110701
  2. BENICAR [Concomitant]
     Dosage: UNK
     Route: 048
     Dates: start: 20060101, end: 20110701

REACTIONS (1)
  - MYOCARDIAL INFARCTION [None]
